FAERS Safety Report 6550622-7 (Version None)
Quarter: 2010Q1

REPORT INFORMATION
  Report Type: 
  Country: None (occurrence: None)
  Receive Date: 20100125
  Receipt Date: 20100121
  Transmission Date: 20100710
  Serious: Yes (Hospitalization)
  Sender: FDA-Public Use
  Company Number: FR-WYE-G05393210

PATIENT
  Sex: Female

DRUGS (1)
  1. ADVIL LIQUI-GELS [Suspect]
     Indication: PYREXIA
     Dosage: UNKNOWN
     Route: 048
     Dates: start: 20091124, end: 20091203

REACTIONS (5)
  - EOSINOPHILIA [None]
  - HYPERSENSITIVITY [None]
  - MYCOPLASMA INFECTION [None]
  - RASH PRURITIC [None]
  - STEVENS-JOHNSON SYNDROME [None]
